FAERS Safety Report 5292119-0 (Version None)
Quarter: 2007Q2

REPORT INFORMATION
  Report Type: 
  Country: None (occurrence: None)
  Receive Date: 20070410
  Receipt Date: 20070405
  Transmission Date: 20071010
  Serious: Yes (Hospitalization)
  Sender: FDA-Public Use
  Company Number: US-GLAXOSMITHKLINE-A0610526A

PATIENT
  Age: 15 Year
  Sex: Female
  Weight: 72.7 kg

DRUGS (6)
  1. PAXIL [Suspect]
     Indication: DEPRESSION
     Dosage: 40MG PER DAY
     Route: 048
     Dates: start: 20020211, end: 20021107
  2. TYLENOL [Suspect]
     Dosage: 1.5BT SINGLE DOSE
     Route: 048
     Dates: start: 20021031, end: 20021031
  3. IBUPROFEN [Suspect]
     Dosage: .5BT SINGLE DOSE
     Route: 048
     Dates: start: 20021031, end: 20021031
  4. TRAZODONE HCL [Concomitant]
  5. GEODON [Concomitant]
  6. LEXAPRO [Concomitant]
     Dates: start: 20021107

REACTIONS (13)
  - ANXIETY [None]
  - DEPRESSION [None]
  - DRUG INEFFECTIVE [None]
  - DRUG TOXICITY [None]
  - HALLUCINATION, AUDITORY [None]
  - OBSESSIVE THOUGHTS [None]
  - PANIC ATTACK [None]
  - PARANOIA [None]
  - PSYCHOTIC DISORDER [None]
  - SOCIAL AVOIDANT BEHAVIOUR [None]
  - SUICIDAL IDEATION [None]
  - SUICIDE ATTEMPT [None]
  - TREMOR [None]
